FAERS Safety Report 12427916 (Version 1)
Quarter: 2016Q2

REPORT INFORMATION
  Report Type: Spontaneous
  Country: US (occurrence: None)
  Receive Date: 20160531
  Receipt Date: 20160531
  Transmission Date: 20160815
  Serious: No
  Sender: FDA-Public Use
  Company Number: None

PATIENT
  Age: 73 Year
  Sex: Female

DRUGS (1)
  1. ESBRIET [Suspect]
     Active Substance: PIRFENIDONE
     Dates: start: 20160507

REACTIONS (3)
  - Diarrhoea [None]
  - Nausea [None]
  - Throat irritation [None]

NARRATIVE: CASE EVENT DATE: 20160530
